FAERS Safety Report 4615859-2 (Version None)
Quarter: 2005Q2

REPORT INFORMATION
  Report Type: 
  Country: None (occurrence: None)
  Receive Date: 20050311
  Receipt Date: 20041103
  Transmission Date: 20051028
  Serious: No
  Sender: FDA-Public Use
  Company Number: 2004-BP-11290BP

PATIENT
  Age: 62 Year
  Sex: Female

DRUGS (10)
  1. SPIRIVA [Suspect]
     Indication: ASTHMA
     Dosage: 18 MCG (18 MCG, MCG ONCE DAILY), IH
     Route: 055
     Dates: start: 20041101
  2. SPIRIVA [Suspect]
     Indication: CHRONIC OBSTRUCTIVE PULMONARY DISEASE
     Dosage: 18 MCG (18 MCG, MCG ONCE DAILY), IH
     Route: 055
     Dates: start: 20041101
  3. PROVENTIL (SALBUTAMOL SULFATE) [Concomitant]
  4. SEREVENT DISKUS(SALMETEROL XINAFOATE) [Concomitant]
  5. FLOVENT [Concomitant]
  6. SINGULAIR (MONTELUKAST) [Concomitant]
  7. VENTOLIN HFA [Concomitant]
  8. ZETIA [Concomitant]
  9. ALDACTONE [Concomitant]
  10. TRIAMTERINE [Concomitant]

REACTIONS (4)
  - FEELING JITTERY [None]
  - INSOMNIA [None]
  - LUNG DISORDER [None]
  - THERAPEUTIC RESPONSE DECREASED [None]
